FAERS Safety Report 20889392 (Version 2)
Quarter: 2022Q2

REPORT INFORMATION
  Report Type: Report from Study
  Country: CH (occurrence: CH)
  Receive Date: 20220530
  Receipt Date: 20220605
  Transmission Date: 20220721
  Serious: Yes (Hospitalization)
  Sender: FDA-Public Use
  Company Number: CH-ABBVIE-22K-151-4410967-00

PATIENT
  Age: 82 Year
  Sex: Male

DRUGS (2)
  1. CARBIDOPA\LEVODOPA [Suspect]
     Active Substance: CARBIDOPA\LEVODOPA
     Indication: Parkinson^s disease
     Dosage: MD: 4.5 ML, CRD: 4.1 ML/H, CRN: 0 ML/H, ED: 1 ML 16 H THERAPY
     Route: 050
     Dates: start: 20220315, end: 20220522
  2. CARBIDOPA\LEVODOPA [Suspect]
     Active Substance: CARBIDOPA\LEVODOPA
     Dosage: MD: 8.5 ML, CRD: 4 ML/H, CRN: 0 ML/H, ED: 1 ML 16 H THERAPY
     Route: 050
     Dates: start: 20220522

REACTIONS (2)
  - Gastrointestinal disorder [Recovering/Resolving]
  - Parenteral nutrition [Not Recovered/Not Resolved]

NARRATIVE: CASE EVENT DATE: 20220520
